FAERS Safety Report 5081493-6 (Version None)
Quarter: 2006Q3

REPORT INFORMATION
  Report Type: 
  Country: None (occurrence: None)
  Receive Date: 20060811
  Receipt Date: 20060726
  Transmission Date: 20061208
  Serious: Yes (Other)
  Sender: FDA-Public Use
  Company Number: US-2006-020648

PATIENT
  Age: 31 Year
  Sex: Female

DRUGS (4)
  1. BETASERON [Suspect]
     Indication: RELAPSING-REMITTING MULTIPLE SCLEROSIS
     Dosage: 8 MIU, EVERY 2D, SUBCUTANEOUS
     Route: 058
     Dates: start: 20060330
  2. ADDERALL (DEXAMFETAMINE SACCHARATE, AMFETAMINE SULFATE, DEXAMFETAMINE [Concomitant]
  3. ABILIFY [Concomitant]
  4. CYMBALTA [Concomitant]

REACTIONS (2)
  - MULTIPLE SCLEROSIS [None]
  - SYSTEMIC LUPUS ERYTHEMATOSUS [None]
